FAERS Safety Report 5571947-8 (Version None)
Quarter: 2007Q4

REPORT INFORMATION
  Report Type: 
  Country: None (occurrence: None)
  Receive Date: 20071221
  Receipt Date: 20071214
  Transmission Date: 20080405
  Serious: Yes (Hospitalization, Other)
  Sender: FDA-Public Use
  Company Number: DE-ABBOTT-06P-062-0322791-00

PATIENT
  Sex: Female
  Weight: 61 kg

DRUGS (8)
  1. HUMIRA [Suspect]
     Indication: PSORIATIC ARTHROPATHY
     Route: 058
     Dates: start: 20050801, end: 20051001
  2. HUMIRA [Suspect]
     Route: 058
     Dates: start: 20070501, end: 20070701
  3. VOLTAREN [Concomitant]
     Indication: PSORIATIC ARTHROPATHY
     Route: 048
     Dates: start: 20040101
  4. PREDNISOLONE [Concomitant]
     Indication: PSORIATIC ARTHROPATHY
     Dosage: 5-7.5MG
     Route: 048
     Dates: start: 19990601
  5. ALENDRONATE SODIUM [Concomitant]
     Indication: OSTEOPENIA
     Route: 048
     Dates: start: 20050701
  6. BISOPROLOL [Concomitant]
     Indication: HYPERTENSION
     Route: 048
     Dates: start: 19990601
  7. DICLOFENAC [Concomitant]
     Indication: PSORIATIC ARTHROPATHY
  8. GLUCOCORTICOIDS [Concomitant]
     Indication: PSORIATIC ARTHROPATHY

REACTIONS (3)
  - IMPAIRED HEALING [None]
  - SKIN GRAFT [None]
  - SKIN ULCER [None]
